FAERS Safety Report 20410334 (Version 1)
Quarter: 2022Q1

REPORT INFORMATION
  Report Type: Spontaneous
  Country: BR (occurrence: BR)
  Receive Date: 20220201
  Receipt Date: 20220201
  Transmission Date: 20220423
  Serious: Yes (Other)
  Sender: FDA-Public Use
  Company Number: BR-002147023-NVSC2022BR013688

PATIENT
  Age: 44 Year
  Sex: Female
  Weight: 60 kg

DRUGS (2)
  1. ERENUMAB [Suspect]
     Active Substance: ERENUMAB
     Indication: Headache
     Dosage: 70 MG, QMO (START DATE: ONE YEAR) STOP DATE: THERE ARE 02 OR 03 MONTHS)
     Route: 058
  2. ERENUMAB [Suspect]
     Active Substance: ERENUMAB
     Dosage: 140 MG, QMO (START DATE: THERE ARE 02 OR 03 MONTHS)
     Route: 058

REACTIONS (2)
  - Headache [Recovering/Resolving]
  - Inappropriate schedule of product administration [Unknown]

NARRATIVE: CASE EVENT DATE: 20220101
